FAERS Safety Report 9739098 (Version 1)
Quarter: 2013Q4

REPORT INFORMATION
  Report Type: Spontaneous
  Country: US (occurrence: US)
  Receive Date: 20131209
  Receipt Date: 20131209
  Transmission Date: 20140711
  Serious: Yes (Hospitalization)
  Sender: FDA-Public Use
  Company Number: US-DRREDDYS-USA/USA/13/0036144

PATIENT
  Age: 13 Year
  Sex: Male

DRUGS (3)
  1. QUETIAPINE FUMARATE TABLETS [Suspect]
     Indication: AFFECTIVE DISORDER
     Route: 048
  2. QUETIAPINE FUMARATE TABLETS [Suspect]
     Route: 065
  3. VALPROIC ACID [Suspect]
     Indication: AFFECTIVE DISORDER
     Dosage: 500 MG DAILY AT BED TIME
     Route: 048

REACTIONS (9)
  - Toxicity to various agents [Recovered/Resolved]
  - Dyskinesia [Recovered/Resolved]
  - Myoclonus [Recovered/Resolved]
  - Akathisia [Recovered/Resolved]
  - Mydriasis [Recovered/Resolved]
  - Tachycardia [Recovered/Resolved]
  - Tachypnoea [Recovered/Resolved]
  - Restlessness [Recovered/Resolved]
  - Drug abuse [Unknown]
